FAERS Safety Report 6153929-0 (Version None)
Quarter: 2009Q2

REPORT INFORMATION
  Report Type: 
  Country: None (occurrence: None)
  Receive Date: 20090409
  Receipt Date: 20090409
  Transmission Date: 20091009
  Serious: Yes (Hospitalization)
  Sender: FDA-Public Use
  Company Number: None

PATIENT
  Sex: Male
  Weight: 93.6 kg

DRUGS (6)
  1. CYCLOPHOSPHAMIDE [Suspect]
     Dosage: 2220 MG
  2. CYTARABINE [Suspect]
     Dosage: 1336 MG
  3. MERCAPTOPURINE [Suspect]
     Dosage: 1800 MG
  4. METHOTREXATE [Suspect]
     Dosage: 60 MG
  5. PEG-L-ASPARAGINASE (K-H) [Suspect]
     Dosage: 5600 MG
  6. VINCRISTINE SULFATE [Suspect]
     Dosage: 4 MG

REACTIONS (8)
  - ASTHENIA [None]
  - ERYTHEMA [None]
  - GASTROINTESTINAL INFLAMMATION [None]
  - HAEMATOCHEZIA [None]
  - HAEMORRHOIDS [None]
  - HEADACHE [None]
  - MELANOSIS COLI [None]
  - PYREXIA [None]
